FAERS Safety Report 13919889 (Version 1)
Quarter: 2017Q3

REPORT INFORMATION
  Report Type: Spontaneous
  Country: US (occurrence: US)
  Receive Date: 20170830
  Receipt Date: 20170830
  Transmission Date: 20171127
  Serious: No
  Sender: FDA-Public Use
  Company Number: US-BECTON DICKINSON-2017BDN00170

PATIENT
  Sex: Female

DRUGS (1)
  1. CHLORAPREP [Suspect]
     Active Substance: CHLORHEXIDINE GLUCONATE\ISOPROPYL ALCOHOL
     Indication: INFECTION PROPHYLAXIS
     Dosage: 1 ML, ONCE TO THE RIGHT AC SPACE
     Route: 061
     Dates: start: 20170523, end: 20170523

REACTIONS (2)
  - Product package associated injury [Unknown]
  - Laceration [Unknown]

NARRATIVE: CASE EVENT DATE: 20170523
